FAERS Safety Report 17944176 (Version 3)
Quarter: 2020Q3

REPORT INFORMATION
  Report Type: Not Available
  Country: US (occurrence: US)
  Receive Date: 20200625
  Receipt Date: 20200723
  Transmission Date: 20201103
  Serious: Yes (Hospitalization)
  Sender: FDA-Public Use
  Company Number: US-NEUROCRINE BIOSCIENCES INC.-2020NBI02097

PATIENT
  Age: 59 Year
  Sex: Male

DRUGS (3)
  1. INGREZZA [Suspect]
     Active Substance: VALBENAZINE
     Indication: TARDIVE DYSKINESIA
     Route: 048
     Dates: start: 20191223
  2. HALDOL [Concomitant]
     Active Substance: HALOPERIDOL
  3. SEROQUEL [Suspect]
     Active Substance: QUETIAPINE FUMARATE
     Indication: BIPOLAR DISORDER

REACTIONS (8)
  - General physical health deterioration [Unknown]
  - Constipation [Unknown]
  - Hypersomnia [Recovered/Resolved]
  - Unresponsive to stimuli [Recovered/Resolved]
  - Muscular weakness [Unknown]
  - Asthenia [Unknown]
  - Accidental overdose [Unknown]
  - Nerve compression [Unknown]

NARRATIVE: CASE EVENT DATE: 20200612
